FAERS Safety Report 6775653-3 (Version None)
Quarter: 2010Q2

REPORT INFORMATION
  Report Type: 
  Country: None (occurrence: None)
  Receive Date: 20100617
  Receipt Date: 20100607
  Transmission Date: 20101027
  Serious: Yes (Hospitalization)
  Sender: FDA-Public Use
  Company Number: JP-SANOFI-AVENTIS-2010SA030424

PATIENT
  Age: 74 Year
  Sex: Male

DRUGS (3)
  1. LANTUS [Suspect]
     Indication: DIABETES MELLITUS
     Dosage: DOSE:100 INTERNATIONAL UNIT(S)/MILLILITRE
     Route: 058
     Dates: start: 20100401, end: 20100525
  2. SOLOSTAR [Suspect]
  3. GLIMICRON [Concomitant]
     Dosage: 120 (UNIT UNKNOWN)
     Route: 048
     Dates: start: 20090109, end: 20100525

REACTIONS (1)
  - HEPATIC FUNCTION ABNORMAL [None]
